FAERS Safety Report 7088054-8 (Version None)
Quarter: 2010Q4

REPORT INFORMATION
  Report Type: 
  Country: None (occurrence: None)
  Receive Date: 20101108
  Receipt Date: 20101102
  Transmission Date: 20110411
  Serious: Yes (Life-Threatening, Hospitalization, Other)
  Sender: FDA-Public Use
  Company Number: PHHY2010FR59768

PATIENT
  Sex: Male
  Weight: 80 kg

DRUGS (12)
  1. RASILEZ [Suspect]
     Indication: HYPERTENSION
     Dosage: 300 MG
     Route: 048
     Dates: start: 20100601, end: 20100708
  2. RASILEZ [Suspect]
     Indication: CARDIAC DISORDER
  3. HYDROCHLOROTHIAZIDE W/RAMIPRIL [Suspect]
     Indication: HYPERTENSION
     Dosage: 1 DF, QD
  4. HYDROCHLOROTHIAZIDE W/RAMIPRIL [Suspect]
     Indication: CARDIAC DISORDER
  5. TRIATEC [Suspect]
     Indication: HYPERTENSION
     Dosage: 1 DF, QD
  6. AMLOR [Concomitant]
     Indication: HYPERTENSION
     Dosage: 1 DF, QD
     Route: 048
  7. AMLOR [Concomitant]
     Indication: CARDIAC DISORDER
  8. TENORMIN [Concomitant]
     Indication: HYPERTENSION
     Dosage: 1 DF, QD
  9. TENORMIN [Concomitant]
     Indication: CARDIAC DISORDER
  10. KARDEGIC [Concomitant]
     Indication: PLATELET AGGREGATION INHIBITION
     Dosage: 1 DF, QD
     Route: 048
  11. ANGIOTENSIN CONVERTING ENZYME BLOCKERS [Suspect]
  12. BETA BLOCKING AGENTS [Concomitant]

REACTIONS (7)
  - ABDOMINAL PAIN [None]
  - ANURIA [None]
  - DYSPEPSIA [None]
  - HYPERCREATININAEMIA [None]
  - RENAL FAILURE ACUTE [None]
  - URINE OUTPUT DECREASED [None]
  - VOMITING [None]
